FAERS Safety Report 7768822-7 (Version None)
Quarter: 2011Q3

REPORT INFORMATION
  Report Type: 
  Country: None (occurrence: None)
  Receive Date: 20110920
  Receipt Date: 20110907
  Transmission Date: 20111222
  Serious: Yes (Hospitalization, Disabling, Other)
  Sender: FDA-Public Use
  Company Number: 2010MA003782

PATIENT
  Age: 45 Year
  Sex: Male
  Weight: 108.8633 kg

DRUGS (23)
  1. NORCO [Concomitant]
  2. LOTREL [Concomitant]
  3. FUROSEMIDE [Concomitant]
  4. HUMALOG [Concomitant]
  5. LIPITOR [Concomitant]
  6. NOVOLIN 70/30 [Concomitant]
  7. METHADONE HCL [Concomitant]
  8. MORPHINE [Concomitant]
  9. PERCOCET [Concomitant]
  10. PRILOSEC [Concomitant]
  11. PHENERGAN HCL [Concomitant]
  12. METOCLOPRAMIDE [Suspect]
     Indication: NAUSEA
     Dosage: 10 MG;QID;PO
     Route: 048
     Dates: start: 20030323, end: 20090301
  13. HUMULIN R [Concomitant]
  14. LYRICA [Concomitant]
  15. ZOFRAN [Concomitant]
  16. POTASSIUM [Concomitant]
  17. ROZEREM [Concomitant]
  18. POLYETHYLENE [Concomitant]
  19. METOPROLOL [Concomitant]
  20. NEXIUM [Concomitant]
  21. FLEXERIL [Concomitant]
  22. LANTUS [Concomitant]
  23. ULTRAM [Concomitant]

REACTIONS (45)
  - TREATMENT NONCOMPLIANCE [None]
  - BRUXISM [None]
  - VISUAL ACUITY REDUCED [None]
  - FALL [None]
  - DIABETIC KETOACIDOSIS [None]
  - SPINAL COLUMN STENOSIS [None]
  - BLOOD PRESSURE INADEQUATELY CONTROLLED [None]
  - RENAL DISORDER [None]
  - ABDOMINAL PAIN [None]
  - LEFT ATRIAL DILATATION [None]
  - IMPAIRED GASTRIC EMPTYING [None]
  - HEPATIC STEATOSIS [None]
  - ABDOMINAL DISTENSION [None]
  - INTERVERTEBRAL DISC SPACE NARROWING [None]
  - MENTAL DISORDER [None]
  - NEUROPATHY PERIPHERAL [None]
  - OESOPHAGITIS [None]
  - ABDOMINAL PAIN UPPER [None]
  - NECK PAIN [None]
  - MELAENA [None]
  - FACET JOINT SYNDROME [None]
  - CONDITION AGGRAVATED [None]
  - HAEMATURIA [None]
  - DRUG ABUSE [None]
  - PAIN IN EXTREMITY [None]
  - DIZZINESS [None]
  - NEPHROPATHY [None]
  - VERTEBRAL FORAMINAL STENOSIS [None]
  - BACK PAIN [None]
  - PROTEINURIA [None]
  - TREMOR [None]
  - MUSCULOSKELETAL PAIN [None]
  - PARAESTHESIA [None]
  - CENTRAL OBESITY [None]
  - INSULIN RESISTANCE [None]
  - HYPOAESTHESIA [None]
  - RENAL FAILURE [None]
  - INTERVERTEBRAL DISC DEGENERATION [None]
  - GASTRITIS [None]
  - DIABETES MELLITUS INADEQUATE CONTROL [None]
  - TEMPOROMANDIBULAR JOINT SYNDROME [None]
  - TOOTH FRACTURE [None]
  - TARDIVE DYSKINESIA [None]
  - EXCESSIVE EYE BLINKING [None]
  - HIATUS HERNIA [None]
